FAERS Safety Report 6806282-0 (Version None)
Quarter: 2010Q2

REPORT INFORMATION
  Report Type: 
  Country: None (occurrence: None)
  Receive Date: 20100629
  Receipt Date: 20080109
  Transmission Date: 20101027
  Serious: No
  Sender: FDA-Public Use
  Company Number: US-PFIZER INC-2008003335

PATIENT
  Age: 77 Year
  Sex: Male
  Weight: 90.909 kg

DRUGS (7)
  1. TIKOSYN [Suspect]
     Indication: ATRIAL FIBRILLATION
     Dosage: 500+250MCG
     Dates: start: 20070601
  2. WARFARIN SODIUM [Concomitant]
  3. ZOCOR [Concomitant]
     Indication: BLOOD CHOLESTEROL INCREASED
  4. TOPROL-XL [Concomitant]
     Indication: HYPERTENSION
  5. TAMSULOSIN HYDROCHLORIDE [Concomitant]
  6. POTASSIUM [Concomitant]
  7. MAGNESIUM [Concomitant]

REACTIONS (3)
  - ASTHENIA [None]
  - FATIGUE [None]
  - SOMNOLENCE [None]
